FAERS Safety Report 9555059 (Version 1)
Quarter: 2013Q3

REPORT INFORMATION
  Report Type: Spontaneous
  Country: US (occurrence: None)
  Receive Date: 20130815
  Receipt Date: 20130815
  Transmission Date: 20140515
  Serious: Yes (Other)
  Sender: FDA-Public Use
  Company Number: ADR-2012-02326

PATIENT
  Sex: Female

DRUGS (2)
  1. BACLOFEN [Suspect]
     Indication: BACK PAIN
  2. DILAUDID (HYDROMORPHONE) INTRATHECAL [Concomitant]

REACTIONS (6)
  - Dizziness [None]
  - Drug withdrawal syndrome [None]
  - Myalgia [None]
  - Tremor [None]
  - Dysarthria [None]
  - Asthenia [None]
